FAERS Safety Report 13598608 (Version 1)
Quarter: 2017Q2

REPORT INFORMATION
  Report Type: Spontaneous
  Country: US (occurrence: US)
  Receive Date: 20170531
  Receipt Date: 20170531
  Transmission Date: 20170830
  Serious: No
  Sender: FDA-Public Use
  Company Number: US-SA-2017SA083429

PATIENT

DRUGS (2)
  1. SOLOSTAR-S DELIVERY DEVICE [Concomitant]
     Indication: DIABETES MELLITUS
  2. SOLIQUA 100/33 [Suspect]
     Active Substance: INSULIN GLARGINE\LIXISENATIDE
     Indication: DIABETES MELLITUS
     Route: 065

REACTIONS (2)
  - Fluid retention [Recovering/Resolving]
  - Limb discomfort [Recovering/Resolving]
